FAERS Safety Report 9720531 (Version 2)
Quarter: 2013Q4

REPORT INFORMATION
  Report Type: Spontaneous
  Country: SI (occurrence: SI)
  Receive Date: 20131129
  Receipt Date: 20131205
  Transmission Date: 20140711
  Serious: Yes (Death, Other)
  Sender: FDA-Public Use
  Company Number: SI-JNJFOC-20131116411

PATIENT
  Age: 76 Year
  Sex: Female

DRUGS (6)
  1. XARELTO [Suspect]
     Indication: CEREBROVASCULAR ACCIDENT PROPHYLAXIS
     Route: 048
  2. XARELTO [Suspect]
     Indication: ATRIAL FIBRILLATION
     Route: 048
  3. LYRICA [Concomitant]
     Route: 065
  4. CYMBALTA [Concomitant]
     Route: 065
  5. CONCOR [Concomitant]
     Route: 065
  6. IRUZID [Concomitant]
     Route: 065

REACTIONS (5)
  - Cerebral haemorrhage [Fatal]
  - Hydrocephalus [Unknown]
  - Coma [Unknown]
  - Haemorrhagic diathesis [Unknown]
  - Vomiting [Unknown]
